FAERS Safety Report 5066457-0 (Version None)
Quarter: 2006Q3

REPORT INFORMATION
  Report Type: 
  Country: None (occurrence: None)
  Receive Date: 20060717
  Receipt Date: 20060616
  Transmission Date: 20061208
  Serious: Yes (Other)
  Sender: FDA-Public Use
  Company Number: SGB1-2005-00533

PATIENT
  Sex: Female
  Weight: 55 kg

DRUGS (10)
  1. ANAGRELIDE HYDROCHLORIDE [Suspect]
     Indication: ESSENTIAL THROMBOCYTHAEMIA
     Dosage: 2.5 MG DAILY, UNKNOWN
     Dates: start: 20030905
  2. ASPIRIN [Concomitant]
  3. PERINDOPRIL ERBUMINE [Concomitant]
  4. BISOPROLOL  /01166101/ (HYDROCHLOROTHIAZIDE, BISOPROLOL FUMARATE) [Concomitant]
  5. ATORVASTATIN CALCIUM [Concomitant]
  6. LANSOPRAZOLE [Concomitant]
  7. XANAX [Concomitant]
  8. VENLAFAXINE HCL [Concomitant]
  9. DALMANE [Concomitant]
  10. ALLOPURINOL [Concomitant]

REACTIONS (1)
  - RENAL IMPAIRMENT [None]
